FAERS Safety Report 7313671-7 (Version None)
Quarter: 2011Q1

REPORT INFORMATION
  Report Type: 
  Country: None (occurrence: None)
  Receive Date: 20110225
  Receipt Date: 20110218
  Transmission Date: 20110831
  Serious: Yes (Other)
  Sender: FDA-Public Use
  Company Number: US-PFIZER INC-2011008302

PATIENT
  Sex: Male
  Weight: 73.923 kg

DRUGS (5)
  1. LOVAZA [Concomitant]
     Indication: CARDIAC DISORDER
     Dosage: 1 MG, 2X/DAY
     Route: 048
  2. ATENOLOL [Concomitant]
     Indication: HEART RATE INCREASED
     Dosage: 25 MG, 1X/DAY
     Route: 048
  3. ACETYLSALICYLIC ACID [Concomitant]
     Dosage: 325 MG, 1X/DAY
     Route: 048
  4. PLAVIX [Concomitant]
     Indication: VASCULAR PROCEDURE COMPLICATION
     Dosage: UNK
  5. LIPITOR [Suspect]
     Indication: BLOOD CHOLESTEROL INCREASED
     Dosage: UNK
     Route: 048

REACTIONS (2)
  - PALPITATIONS [None]
  - BLOOD PRESSURE ABNORMAL [None]
